FAERS Safety Report 8611552-X (Version None)
Quarter: 2012Q3

REPORT INFORMATION
  Report Type: 
  Country: None (occurrence: None)
  Receive Date: 20120822
  Receipt Date: 20120813
  Transmission Date: 20120928
  Serious: Yes (Hospitalization, Other)
  Sender: FDA-Public Use
  Company Number: PHHY2012DE064402

PATIENT
  Sex: Female

DRUGS (8)
  1. TRIMIPRAMINE MALEATE [Concomitant]
     Indication: SLEEP DISORDER
     Dosage: 10 DRP, PRN
     Route: 048
     Dates: start: 20120127
  2. PREDNISOLONE [Concomitant]
     Dosage: 100 MG, BID
  3. GILENYA [Suspect]
     Indication: MULTIPLE SCLEROSIS
     Dosage: 0.5 MG, QD
     Route: 048
     Dates: start: 20110616, end: 20120717
  4. FLOMAX [Concomitant]
     Dosage: 1 DF, QD
  5. ASPIRIN [Concomitant]
     Dosage: 3 DF, QD
  6. PANTOPRAZOLE [Concomitant]
     Dosage: UNK UKN, UNK
  7. RESTEX [Concomitant]
     Indication: RESTLESS LEGS SYNDROME
     Dosage: 100 MG, UNK
     Route: 048
     Dates: start: 20080115
  8. ALLOPURINOL [Concomitant]
     Dosage: 1 DF, QD

REACTIONS (23)
  - BLOOD LACTATE DEHYDROGENASE INCREASED [None]
  - ALPHA 1 GLOBULIN INCREASED [None]
  - WHITE BLOOD CELL COUNT DECREASED [None]
  - BUNDLE BRANCH BLOCK LEFT [None]
  - B-CELL LYMPHOMA [None]
  - NON-HODGKIN'S LYMPHOMA [None]
  - PLEURAL EFFUSION [None]
  - EOSINOPHIL COUNT INCREASED [None]
  - BLOOD PRESSURE DIASTOLIC DECREASED [None]
  - MEAN CELL VOLUME DECREASED [None]
  - BLOOD PRESSURE SYSTOLIC INCREASED [None]
  - LYMPHOCYTE COUNT DECREASED [None]
  - MITRAL VALVE INCOMPETENCE [None]
  - MONOCYTE COUNT INCREASED [None]
  - BLOOD CHOLESTEROL INCREASED [None]
  - DYSPNOEA [None]
  - GLOMERULAR FILTRATION RATE INCREASED [None]
  - BLOOD GLUCOSE INCREASED [None]
  - C-REACTIVE PROTEIN INCREASED [None]
  - PNEUMOTHORAX [None]
  - TACHYCARDIA [None]
  - BLOOD UREA INCREASED [None]
  - ALPHA 2 GLOBULIN INCREASED [None]
